FAERS Safety Report 19531329 (Version 2)
Quarter: 2021Q3

REPORT INFORMATION
  Report Type: Spontaneous
  Country: JP (occurrence: JP)
  Receive Date: 20210713
  Receipt Date: 20210806
  Transmission Date: 20211014
  Serious: No
  Sender: FDA-Public Use
  Company Number: JP-GLAXOSMITHKLINE-JP2021121219

PATIENT
  Age: 69 Year
  Sex: Male

DRUGS (4)
  1. RELVAR ELLIPTA [Suspect]
     Active Substance: FLUTICASONE FUROATE\VILANTEROL TRIFENATATE
     Indication: EMPHYSEMA
  2. THEOPHYLLINE SUSTAINED?RELEASE TABLETS [Concomitant]
     Dosage: 200 MG, BID
     Dates: start: 202003
  3. RELVAR ELLIPTA [Suspect]
     Active Substance: FLUTICASONE FUROATE\VILANTEROL TRIFENATATE
     Indication: ASTHMA
     Dosage: UNK UNK, QD, 1 INHALATION
     Route: 055
     Dates: start: 202003
  4. AMLODIPINE OD TABLETS [Concomitant]
     Active Substance: AMLODIPINE BESYLATE
     Dosage: 5 MG, QD

REACTIONS (6)
  - Asthma [Recovered/Resolved]
  - Emphysema [Recovered/Resolved]
  - Off label use [Unknown]
  - Product quality issue [Unknown]
  - Disease progression [Recovered/Resolved]
  - Product use in unapproved indication [Unknown]

NARRATIVE: CASE EVENT DATE: 20210503
